FAERS Safety Report 14022654 (Version 2)
Quarter: 2017Q4

REPORT INFORMATION
  Report Type: Spontaneous
  Country: ZA (occurrence: ZA)
  Receive Date: 20170929
  Receipt Date: 20171004
  Transmission Date: 20180321
  Serious: Yes (Death, Hospitalization)
  Sender: FDA-Public Use
  Company Number: ZA-MYLANLABS-2017M1061728

PATIENT
  Age: 43 Year
  Sex: Male

DRUGS (3)
  1. CLOZAPINE. [Suspect]
     Active Substance: CLOZAPINE
     Indication: SCHIZOPHRENIA
     Dosage: UNK
  2. CLOZAPINE. [Suspect]
     Active Substance: CLOZAPINE
     Dosage: 700 MG, QD
  3. CLOZAPINE. [Suspect]
     Active Substance: CLOZAPINE
     Dosage: 400 MG, QD

REACTIONS (6)
  - Faecaloma [Unknown]
  - Diet refusal [Unknown]
  - Cardiac arrest [Unknown]
  - Intestinal obstruction [Fatal]
  - Gastrointestinal necrosis [Unknown]
  - Intestinal ischaemia [Unknown]
